FAERS Safety Report 6757898-1 (Version None)
Quarter: 2010Q2

REPORT INFORMATION
  Report Type: 
  Country: None (occurrence: None)
  Receive Date: 20100607
  Receipt Date: 20100524
  Transmission Date: 20101027
  Serious: Yes (Death, Other)
  Sender: FDA-Public Use
  Company Number: GB-BAUSCH-2010BL002891

PATIENT
  Sex: Male

DRUGS (2)
  1. DEXAMETHASONE [Suspect]
     Indication: DRUG USE FOR UNKNOWN INDICATION
     Route: 064
     Dates: start: 20070101
  2. IMMU-G [Suspect]
     Indication: HEART BLOCK CONGENITAL
     Route: 064
     Dates: start: 20070101

REACTIONS (6)
  - ASCITES [None]
  - CARDIOMEGALY [None]
  - HEART BLOCK CONGENITAL [None]
  - HYDROPS FOETALIS [None]
  - MATERNAL DRUGS AFFECTING FOETUS [None]
  - PERICARDIAL EFFUSION [None]
